FAERS Safety Report 18533935 (Version 1)
Quarter: 2020Q4

REPORT INFORMATION
  Report Type: Spontaneous
  Country: US (occurrence: US)
  Receive Date: 20201122
  Receipt Date: 20201122
  Transmission Date: 20210114
  Serious: Yes (Other)
  Sender: FDA-Public Use
  Company Number: None

PATIENT
  Age: 6 Year
  Sex: Female
  Weight: 22.5 kg

DRUGS (2)
  1. MONTELUKAST [Suspect]
     Active Substance: MONTELUKAST SODIUM
     Indication: MULTIPLE ALLERGIES
     Route: 048
     Dates: start: 20190801
  2. MONTELUKAST [Suspect]
     Active Substance: MONTELUKAST SODIUM
     Indication: ASTHMA
     Route: 048
     Dates: start: 20190801

REACTIONS (8)
  - Anger [None]
  - Social avoidant behaviour [None]
  - Affect lability [None]
  - Abnormal behaviour [None]
  - Sleep terror [None]
  - Screaming [None]
  - Depressed mood [None]
  - Withdrawal syndrome [None]

NARRATIVE: CASE EVENT DATE: 20191230
